FAERS Safety Report 13949890 (Version 2)
Quarter: 2017Q3

REPORT INFORMATION
  Report Type: Spontaneous
  Country: US (occurrence: US)
  Receive Date: 20170908
  Receipt Date: 20170915
  Transmission Date: 20171128
  Serious: Yes (Death)
  Sender: FDA-Public Use
  Company Number: US-BAYER-2017-168525

PATIENT
  Age: 24 Year
  Sex: Female

DRUGS (4)
  1. DEXTROMETHORPHAN [DEXTROMETHORPHAN] [Suspect]
     Active Substance: DEXTROMETHORPHAN
  2. TETRAHYDROCANNABINOL [Suspect]
     Active Substance: DRONABINOL
  3. COCAINE [Suspect]
     Active Substance: COCAINE
  4. CHLORPHENIRAMINE MALEATE. [Suspect]
     Active Substance: CHLORPHENIRAMINE MALEATE
     Dosage: UNK

REACTIONS (1)
  - Toxicity to various agents [Fatal]
